FAERS Safety Report 8953960 (Version 1)
Quarter: 2012Q4

REPORT INFORMATION
  Report Type: 
  Country: US (occurrence: US)
  Receive Date: 20121206
  Receipt Date: 20121206
  Transmission Date: 20130627
  Serious: Yes (Other)
  Sender: FDA-Public Use
  Company Number: CHPA2012US024513

PATIENT
  Age: 73 Year
  Sex: Male

DRUGS (3)
  1. TRIAMINIC COLD AND ALLERGY [Suspect]
     Indication: NASOPHARYNGITIS
     Dosage: 1 to 2 TSP, PRN
     Route: 048
  2. TRIAMINIC DAY TIME COLD + COUGH [Suspect]
     Indication: NASOPHARYNGITIS
     Dosage: 1 to 2 TSP, PRN
     Route: 048
  3. TRIAMINIC NIGHT TIME COLD + COUGH [Suspect]
     Indication: NASOPHARYNGITIS
     Dosage: 1 to 2 TSP, PRN
     Route: 048

REACTIONS (3)
  - Hypertension [Not Recovered/Not Resolved]
  - Blood cholesterol increased [Not Recovered/Not Resolved]
  - Gout [Not Recovered/Not Resolved]
